FAERS Safety Report 8349318-0 (Version None)
Quarter: 2012Q2

REPORT INFORMATION
  Report Type: 
  Country: None (occurrence: None)
  Receive Date: 20120510
  Receipt Date: 20120507
  Transmission Date: 20120825
  Serious: Yes (Other)
  Sender: FDA-Public Use
  Company Number: PHEH2012US007690

PATIENT
  Sex: Female

DRUGS (2)
  1. PROGESTERONE [Concomitant]
     Indication: MENOPAUSE
     Dosage: 100 MG, QHS
  2. VIVELLE-DOT [Suspect]
     Dosage: 0.025 MG, TWICE WEEKLY

REACTIONS (1)
  - IRRITABLE BOWEL SYNDROME [None]
